FAERS Safety Report 9115652 (Version 1)
Quarter: 2013Q1

REPORT INFORMATION
  Report Type: Spontaneous
  Country: US (occurrence: US)
  Receive Date: 20130225
  Receipt Date: 20130225
  Transmission Date: 20140127
  Serious: No
  Sender: FDA-Public Use
  Company Number: US-BRISTOL-MYERS SQUIBB COMPANY-17027863

PATIENT
  Age: 71 Year
  Sex: Female

DRUGS (6)
  1. KENALOG [Suspect]
     Indication: ROTATOR CUFF SYNDROME
  2. GLIPIZIDE [Concomitant]
  3. METFORMIN [Concomitant]
  4. LISINOPRIL [Concomitant]
  5. OMEPRAZOLE [Concomitant]
  6. BABY ASPIRIN [Concomitant]

REACTIONS (1)
  - Blood glucose increased [Unknown]
